FAERS Safety Report 11646073 (Version 1)
Quarter: 2015Q4

REPORT INFORMATION
  Report Type: Spontaneous
  Country: US (occurrence: US)
  Receive Date: 20151020
  Receipt Date: 20151020
  Transmission Date: 20160304
  Serious: No
  Sender: FDA-Public Use
  Company Number: US-ROCHE-1606416

PATIENT
  Age: 78 Year
  Sex: Male
  Weight: 83.54 kg

DRUGS (3)
  1. ESBRIET [Suspect]
     Active Substance: PIRFENIDONE
     Route: 048
     Dates: start: 20150523
  2. ESBRIET [Suspect]
     Active Substance: PIRFENIDONE
     Indication: IDIOPATHIC PULMONARY FIBROSIS
     Dosage: 3 CAPSULES THRICE DAILY
     Route: 048
     Dates: start: 20150317
  3. ESBRIET [Suspect]
     Active Substance: PIRFENIDONE
     Dosage: 2 CAPSULES THRICE DAILY
     Route: 048

REACTIONS (6)
  - Myalgia [Recovered/Resolved]
  - Dizziness [Unknown]
  - Asthenia [Unknown]
  - Fatigue [Unknown]
  - Nausea [Unknown]
  - Gastric disorder [Unknown]

NARRATIVE: CASE EVENT DATE: 20150723
